FAERS Safety Report 16043394 (Version 1)
Quarter: 2019Q1

REPORT INFORMATION
  Report Type: Spontaneous
  Country: GB (occurrence: GB)
  Receive Date: 20190306
  Receipt Date: 20190306
  Transmission Date: 20190418
  Serious: Yes (Other)
  Sender: FDA-Public Use
  Company Number: GB-TEVA-2019-GB-1019413

PATIENT
  Age: 68 Year
  Sex: Male

DRUGS (2)
  1. TEICOPLANIN [Suspect]
     Active Substance: TEICOPLANIN
     Route: 042
     Dates: end: 20181117
  2. METRONIDAZOLE. [Suspect]
     Active Substance: METRONIDAZOLE
     Route: 042
     Dates: end: 20181117

REACTIONS (3)
  - Circulatory collapse [Unknown]
  - Anaphylactic reaction [Unknown]
  - Dyskinesia [Unknown]

NARRATIVE: CASE EVENT DATE: 20181118
